FAERS Safety Report 23218448 (Version 3)
Quarter: 2023Q4

REPORT INFORMATION
  Report Type: Spontaneous
  Country: GB (occurrence: GB)
  Receive Date: 20231122
  Receipt Date: 20231201
  Transmission Date: 20240110
  Serious: Yes (Death, Hospitalization, Other)
  Sender: FDA-Public Use
  Company Number: GB-002147023-NVSC2023GB242107

PATIENT
  Age: 77 Year
  Sex: Female

DRUGS (11)
  1. EVEROLIMUS [Suspect]
     Active Substance: EVEROLIMUS
     Indication: Insulinoma
     Dosage: UNK
     Route: 065
  2. LUTATHERA [Suspect]
     Active Substance: LUTETIUM OXODOTREOTIDE LU-177
     Indication: Insulinoma
     Dosage: UNK
     Route: 065
  3. OCTREOTIDE [Suspect]
     Active Substance: OCTREOTIDE
     Indication: Insulinoma
     Dosage: 50 MICROGRAM, TID
     Route: 058
  4. OCTREOTIDE [Suspect]
     Active Substance: OCTREOTIDE
     Dosage: 200 MICROGRAM, TID
     Route: 065
  5. OCTREOTIDE [Suspect]
     Active Substance: OCTREOTIDE
     Dosage: 10 MILLIGRAM (STARTING DOSE)
     Route: 065
  6. OCTREOTIDE [Suspect]
     Active Substance: OCTREOTIDE
     Dosage: 30 MILLIGRAM
     Route: 065
  7. BENDROFLUMETHIAZIDE [Concomitant]
     Active Substance: BENDROFLUMETHIAZIDE
     Indication: Oedema
     Dosage: 2.5 MILLIGRAM, QD
     Route: 065
  8. DEXAMETHASONE [Concomitant]
     Active Substance: DEXAMETHASONE
     Indication: Product used for unknown indication
     Dosage: 2 MILLIGRAM, BID
     Route: 065
  9. DIAZOXIDE [Concomitant]
     Active Substance: DIAZOXIDE
     Indication: Product used for unknown indication
     Dosage: UNK
     Route: 065
  10. GLUCAGON [Concomitant]
     Active Substance: GLUCAGON\GLUCAGON HYDROCHLORIDE\WATER
     Indication: Product used for unknown indication
     Dosage: UNK
     Route: 065
  11. PASIREOTIDE [Concomitant]
     Active Substance: PASIREOTIDE
     Indication: Product used for unknown indication
     Dosage: 0.6 MILLIGRAM, UNK
     Route: 058

REACTIONS (7)
  - Death [Fatal]
  - Insulinoma [Unknown]
  - Malignant neoplasm progression [Unknown]
  - Hypoglycaemic seizure [Unknown]
  - Neutropenia [Unknown]
  - Hypoglycaemia [Unknown]
  - Sepsis [Unknown]
